FAERS Safety Report 6600259-6 (Version None)
Quarter: 2010Q1

REPORT INFORMATION
  Report Type: 
  Country: None (occurrence: None)
  Receive Date: 20100224
  Receipt Date: 20100224
  Transmission Date: 20100710
  Serious: Yes (Hospitalization)
  Sender: FDA-Public Use
  Company Number: JP-ABBOTT-10P-087-0618012-00

PATIENT
  Sex: Female
  Weight: 63 kg

DRUGS (22)
  1. HUMIRA [Suspect]
     Indication: RHEUMATOID ARTHRITIS
     Route: 058
     Dates: start: 20090330, end: 20091210
  2. HUMIRA [Suspect]
     Route: 058
     Dates: start: 20100104
  3. METHOTREXATE [Suspect]
     Indication: RHEUMATOID ARTHRITIS
     Dosage: 4MG/WK
     Route: 048
     Dates: start: 20080909
  4. MIGLITOL [Concomitant]
     Indication: DIABETES MELLITUS
     Route: 048
  5. AMLODIPINE BESYLATE [Concomitant]
     Indication: HYPERTENSION
     Route: 048
  6. ATORVASTATIN CALCIUM [Concomitant]
     Indication: HYPERLIPIDAEMIA
     Route: 048
  7. KALLIDINOGENASE [Concomitant]
     Indication: HYPERTENSION
     Route: 048
  8. RABEPRAZOLE SODIUM [Concomitant]
     Indication: GASTRITIS
     Route: 048
  9. ALPRAZOLAM [Concomitant]
     Indication: DEPRESSION
     Route: 048
  10. CETIRIZINE HYDROCHLORIDE [Concomitant]
     Indication: RHINITIS ALLERGIC
     Route: 048
  11. PAROXETINE HYDROCHLORIDE [Concomitant]
     Indication: DEPRESSION
     Route: 048
  12. TIZANIDINE HYDROCHLORIDE [Concomitant]
     Indication: CERVICAL MYELOPATHY
     Route: 048
  13. MECOBALAMIN [Concomitant]
     Indication: NEUROPATHY PERIPHERAL
     Route: 048
  14. EXTRACT FROM INFLAMMATORY RABBIT SKIN INOCULATED BY VACCINIA VIRUS [Concomitant]
     Indication: CERVICAL MYELOPATHY
     Route: 048
  15. FERROUS CITRATE [Concomitant]
     Indication: IRON DEFICIENCY ANAEMIA
     Dates: start: 20081114
  16. MINOCYCLINE HYDROCHLORIDE [Concomitant]
     Indication: CHRONIC SINUSITIS
     Dates: start: 20080930
  17. ETODOLAC [Concomitant]
     Indication: RHEUMATOID ARTHRITIS
     Route: 048
     Dates: start: 20090318, end: 20090522
  18. REBAMIPIDE [Concomitant]
     Indication: GASTRITIS
     Route: 048
     Dates: start: 20090318, end: 20090522
  19. URAPIDIL [Concomitant]
     Indication: NEUROGENIC BLADDER
     Route: 048
     Dates: start: 20050621
  20. BETHANECHOL CHLORIDE [Concomitant]
     Indication: NEUROGENIC BLADDER
     Route: 048
     Dates: start: 20050621
  21. TEPRENONE [Concomitant]
     Indication: GASTRITIS
     Route: 048
  22. DIFENIDOL HYDROCHLORIDE [Concomitant]
     Indication: MENIERE'S DISEASE
     Route: 048

REACTIONS (4)
  - HERPES ZOSTER [None]
  - HYPOCHLORAEMIA [None]
  - HYPOKALAEMIA [None]
  - HYPONATRAEMIA [None]
